FAERS Safety Report 8794267 (Version 1)
Quarter: 2012Q4

REPORT INFORMATION
  Report Type: 
  Country: JP (occurrence: JP)
  Receive Date: 20120917
  Receipt Date: 20120917
  Transmission Date: 20130627
  Serious: Yes (Hospitalization)
  Sender: FDA-Public Use
  Company Number: JP-BAXTER-2012BAX016907

PATIENT
  Sex: Female

DRUGS (1)
  1. DIANEAL-N PD-4 2.5 PD SOLUTION [Suspect]
     Indication: RENAL FAILURE CHRONIC
     Dosage: 1200 ml
     Route: 033
     Dates: start: 20080414

REACTIONS (1)
  - Decreased appetite [Not Recovered/Not Resolved]
